FAERS Safety Report 5056314-8 (Version None)
Quarter: 2006Q3

REPORT INFORMATION
  Report Type: 
  Country: None (occurrence: None)
  Receive Date: 20060717
  Receipt Date: 20060703
  Transmission Date: 20061208
  Serious: Yes (Death)
  Sender: FDA-Public Use
  Company Number: 2006073816

PATIENT
  Age: 73 Year
  Sex: Male
  Weight: 32.9 kg

DRUGS (10)
  1. ZYVOX [Suspect]
     Indication: STAPHYLOCOCCAL INFECTION
     Dosage: SEE IMAGE
     Dates: start: 20040318, end: 20040426
  2. ZYVOX [Suspect]
     Indication: STAPHYLOCOCCAL INFECTION
     Dosage: SEE IMAGE
     Dates: start: 20040523, end: 20040624
  3. ZYVOX [Suspect]
     Indication: STAPHYLOCOCCAL INFECTION
     Dosage: SEE IMAGE
     Dates: start: 20040713, end: 20040907
  4. ZYVOX [Suspect]
     Indication: STAPHYLOCOCCAL INFECTION
     Dosage: SEE IMAGE
     Dates: start: 20040702
  5. WARFARIN SODIUM [Concomitant]
  6. DOGMATYL (SULPIRIDE) [Concomitant]
  7. MUCOSTA (REBAMIPIDE) [Concomitant]
  8. VITAMEDIN CAPSULE (BENFOTIAMINE, CYANOCOBALAMIN, PYRIDOXINE HYDROCHLOR [Concomitant]
  9. FAMOTIDINE [Concomitant]
  10. POSTERISAN FORTE (ESCHERICHIA COLI, LYOPHILIZED, HYDROCORTISONE, LANOL [Concomitant]

REACTIONS (14)
  - ANOREXIA [None]
  - BLOOD CREATININE INCREASED [None]
  - BLOOD POTASSIUM INCREASED [None]
  - BLOOD UREA INCREASED [None]
  - DYSPNOEA [None]
  - HAEMOGLOBIN INCREASED [None]
  - INTERNATIONAL NORMALISED RATIO INCREASED [None]
  - METABOLIC ACIDOSIS [None]
  - MULTI-ORGAN FAILURE [None]
  - PLATELET COUNT DECREASED [None]
  - PROTHROMBIN TIME PROLONGED [None]
  - PYREXIA [None]
  - TACHYPNOEA [None]
  - THROMBOSIS IN DEVICE [None]
